FAERS Safety Report 10085445 (Version 2)
Quarter: 2014Q2

REPORT INFORMATION
  Report Type: Report from Study
  Country: US (occurrence: US)
  Receive Date: 20140418
  Receipt Date: 20140609
  Transmission Date: 20141212
  Serious: Yes (Other)
  Sender: FDA-Public Use
  Company Number: US-BIOGENIDEC-2014BI035112

PATIENT
  Sex: Female
  Weight: 95 kg

DRUGS (5)
  1. AVONEX [Suspect]
     Indication: MULTIPLE SCLEROSIS
     Route: 030
     Dates: start: 20090721, end: 20110228
  2. AVONEX [Suspect]
     Indication: MULTIPLE SCLEROSIS
     Route: 030
     Dates: start: 20121209, end: 20130916
  3. AVONEX [Suspect]
     Indication: MULTIPLE SCLEROSIS
     Route: 030
     Dates: end: 20140221
  4. GILENYA [Concomitant]
  5. ASPIRIN [Concomitant]

REACTIONS (11)
  - Deep vein thrombosis [Unknown]
  - Hypercoagulation [Unknown]
  - Somnolence [Unknown]
  - Adverse event [Unknown]
  - Developmental hip dysplasia [Unknown]
  - Dysaesthesia [Unknown]
  - Back pain [Unknown]
  - Overweight [Unknown]
  - Insomnia [Unknown]
  - Headache [Unknown]
  - Influenza like illness [Unknown]
